FAERS Safety Report 26021266 (Version 1)
Quarter: 2025Q4

REPORT INFORMATION
  Report Type: Spontaneous
  Country: US (occurrence: US)
  Receive Date: 20251110
  Receipt Date: 20251110
  Transmission Date: 20260117
  Serious: Yes (Other)
  Sender: PFIZER
  Company Number: US-PFIZER INC-PV202500129797

PATIENT
  Age: 81 Year
  Sex: Female

DRUGS (5)
  1. LORLATINIB [Suspect]
     Active Substance: LORLATINIB
     Indication: Non-small cell lung cancer stage IV
     Dosage: 100 MG, 1X/DAY
  2. LORLATINIB [Suspect]
     Active Substance: LORLATINIB
     Dosage: 75 MG, 1X/DAY
  3. LORLATINIB [Suspect]
     Active Substance: LORLATINIB
     Dosage: 25 MG, 1X/DAY
  4. LORLATINIB [Suspect]
     Active Substance: LORLATINIB
     Dosage: 25 MG, ALTERNATE DAY
  5. LORLATINIB [Suspect]
     Active Substance: LORLATINIB
     Dosage: 25 MG, ALTERNATE DAY RESUMING

REACTIONS (1)
  - Neurotoxicity [Recovering/Resolving]
